FAERS Safety Report 9880931 (Version 1)
Quarter: 2014Q1

REPORT INFORMATION
  Report Type: Spontaneous
  Country: FR (occurrence: FR)
  Receive Date: 20140207
  Receipt Date: 20140207
  Transmission Date: 20141002
  Serious: Yes (Hospitalization, Disabling)
  Sender: FDA-Public Use
  Company Number: FR-B.I. PHARMACEUTICALS,INC./RIDGEFIELD-2014-BI-05047FF

PATIENT
  Age: 90 Year
  Sex: Male
  Weight: 78 kg

DRUGS (1)
  1. PRADAXA [Suspect]
     Indication: ATRIAL FIBRILLATION
     Dosage: 220 MG
     Route: 048
     Dates: start: 20130923, end: 20131206

REACTIONS (2)
  - Retinal artery occlusion [Recovered/Resolved with Sequelae]
  - Blindness unilateral [Recovered/Resolved with Sequelae]
